FAERS Safety Report 7586561-2 (Version None)
Quarter: 2011Q3

REPORT INFORMATION
  Report Type: 
  Country: None (occurrence: None)
  Receive Date: 20110701
  Receipt Date: 20110629
  Transmission Date: 20111222
  Serious: Yes (Death, Hospitalization)
  Sender: FDA-Public Use
  Company Number: JP-B.I. PHARMACEUTICALS,INC./RIDGEFIELD-2011-BP-16621NB

PATIENT

DRUGS (1)
  1. TELMISARTAN/AMLODIPINE [Suspect]
     Dosage: TELMISARTAN40MG+AMLODIPINE5MG
     Route: 048
     Dates: start: 20101201, end: 20110408

REACTIONS (2)
  - GRANULOCYTE COUNT DECREASED [None]
  - DRUG ERUPTION [None]
